FAERS Safety Report 6565401-4 (Version None)
Quarter: 2010Q1

REPORT INFORMATION
  Report Type: 
  Country: None (occurrence: None)
  Receive Date: 20100201
  Receipt Date: 20091218
  Transmission Date: 20100710
  Serious: Yes (Death, Life-Threatening, Other)
  Sender: FDA-Public Use
  Company Number: US-BAXTER-2009BH002406

PATIENT
  Age: 55 Year
  Sex: Female
  Weight: 49 kg

DRUGS (11)
  1. HEPARIN SODIUM INJECTION [Suspect]
     Indication: THROMBOSIS PROPHYLAXIS
     Route: 010
     Dates: start: 20070108, end: 20070108
  2. HEPARIN SODIUM INJECTION [Suspect]
     Route: 010
     Dates: start: 20070108, end: 20070108
  3. HEPARIN SODIUM INJECTION [Suspect]
     Route: 010
     Dates: start: 20070108, end: 20070108
  4. HEPARIN SODIUM INJECTION [Suspect]
     Route: 010
     Dates: start: 20070112, end: 20070112
  5. WARFARIN SODIUM [Concomitant]
     Indication: DRUG USE FOR UNKNOWN INDICATION
     Route: 065
  6. LOMOTIL [Concomitant]
     Indication: DRUG USE FOR UNKNOWN INDICATION
     Route: 065
  7. RENAGEL [Concomitant]
     Indication: DRUG USE FOR UNKNOWN INDICATION
     Route: 048
  8. MULTI-VITAMINS [Concomitant]
     Indication: DRUG USE FOR UNKNOWN INDICATION
     Route: 065
  9. ANTIBIOTICS [Concomitant]
     Indication: DRUG USE FOR UNKNOWN INDICATION
     Route: 065
  10. CORTICOSTEROIDS [Concomitant]
     Indication: DRUG USE FOR UNKNOWN INDICATION
     Route: 065
  11. IRON [Concomitant]
     Indication: DRUG USE FOR UNKNOWN INDICATION
     Route: 065

REACTIONS (14)
  - ABDOMINAL PAIN UPPER [None]
  - ANOXIC ENCEPHALOPATHY [None]
  - BLOOD PRESSURE IMMEASURABLE [None]
  - CARDIAC ARREST [None]
  - COLITIS [None]
  - DIARRHOEA [None]
  - DIZZINESS [None]
  - DYSPNOEA [None]
  - INTESTINAL PERFORATION [None]
  - ORGAN FAILURE [None]
  - PULSE ABSENT [None]
  - SEPTIC SHOCK [None]
  - UNRESPONSIVE TO STIMULI [None]
  - VOMITING [None]
